FAERS Safety Report 17309479 (Version 1)
Quarter: 2020Q1

REPORT INFORMATION
  Report Type: Spontaneous
  Country: US (occurrence: US)
  Receive Date: 20200123
  Receipt Date: 20200123
  Transmission Date: 20200409
  Serious: No
  Sender: FDA-Public Use
  Company Number: US-ROCHE-2455797

PATIENT
  Sex: Male

DRUGS (3)
  1. HEMLIBRA [Suspect]
     Active Substance: EMICIZUMAB-KXWH
     Dosage: 60MG/0.4ML VIAL?(2X 60MG +2X105MG)
     Route: 058
     Dates: start: 201909
  2. HARVONI [Concomitant]
     Active Substance: LEDIPASVIR\SOFOSBUVIR
  3. HEMLIBRA [Suspect]
     Active Substance: EMICIZUMAB-KXWH
     Indication: FACTOR VIII DEFICIENCY
     Dosage: 105MG/0.7ML VIAL?(2X 60MG +2X105MG)
     Route: 058
     Dates: start: 201909

REACTIONS (2)
  - Arthralgia [Unknown]
  - Joint range of motion decreased [Unknown]
